FAERS Safety Report 4357895-X (Version None)
Quarter: 2004Q2

REPORT INFORMATION
  Report Type: 
  Country: None (occurrence: None)
  Receive Date: 20040514
  Receipt Date: 20040507
  Transmission Date: 20050107
  Serious: Yes (Life-Threatening)
  Sender: FDA-Public Use
  Company Number: PHBS2004JP06191

PATIENT
  Age: 55 Year
  Sex: Male

DRUGS (3)
  1. GLEEVEC [Suspect]
     Indication: CHRONIC MYELOID LEUKAEMIA
     Dosage: 800 MG/DAY
     Route: 048
     Dates: start: 20040422, end: 20040423
  2. ONCOVIN [Suspect]
     Route: 042
     Dates: start: 20040415
  3. ADRIACIN [Suspect]
     Route: 042
     Dates: start: 20040415

REACTIONS (1)
  - ENDOTOXIC SHOCK [None]
